FAERS Safety Report 7496376-1 (Version None)
Quarter: 2011Q2

REPORT INFORMATION
  Report Type: 
  Country: None (occurrence: None)
  Receive Date: 20110520
  Receipt Date: 20110520
  Transmission Date: 20111010
  Serious: No
  Sender: FDA-Public Use
  Company Number: None

PATIENT
  Sex: Male
  Weight: 66.0437 kg

DRUGS (2)
  1. POLYMYCIN/BACITRACIN OINTMENT AKORN [Suspect]
     Indication: INFECTION PROPHYLAXIS
     Dosage: BID TOP
     Route: 061
     Dates: start: 20110309, end: 20110314
  2. POLYMYCIN/BACITRACIN OINTMENT AKORN [Suspect]
     Indication: ENTROPION
     Dosage: BID TOP
     Route: 061
     Dates: start: 20110309, end: 20110314

REACTIONS (1)
  - EYE SWELLING [None]
